FAERS Safety Report 9815011 (Version 3)
Quarter: 2014Q1

REPORT INFORMATION
  Report Type: Report from Study
  Country: GB (occurrence: GB)
  Receive Date: 20140114
  Receipt Date: 20140115
  Transmission Date: 20141002
  Serious: Yes (Hospitalization)
  Sender: FDA-Public Use
  Company Number: GB-ROCHE-1322607

PATIENT
  Age: 63 Year
  Sex: Female

DRUGS (12)
  1. PERTUZUMAB [Suspect]
     Indication: BREAST CANCER METASTATIC
     Dosage: LOADING DOSE. LAST DOSE PRIOR TO SAE 05/DEC/2013
     Route: 042
     Dates: start: 20131205
  2. TRASTUZUMAB [Suspect]
     Indication: BREAST CANCER METASTATIC
     Dosage: LOADING DOSE. LAST DOSE BEFORE SAE WAS ON 06/DEC/2013
     Route: 042
     Dates: start: 20131206
  3. DOCETAXEL [Suspect]
     Indication: BREAST CANCER METASTATIC
     Dosage: DATE OF LAST DOSE PRIOR TO SAE 06/DEC/2013
     Route: 042
     Dates: start: 20131206
  4. DOCETAXEL [Suspect]
     Route: 042
     Dates: start: 20131231
  5. LORATADINE [Concomitant]
     Route: 065
  6. ALENDRONIC ACID [Concomitant]
     Route: 065
     Dates: start: 20131111
  7. SYMBICORT [Concomitant]
     Dosage: 1 PUFF
     Route: 065
  8. MIRTAZAPINE [Concomitant]
     Route: 065
  9. DALTEPARIN [Concomitant]
     Dosage: 5000 UNIOTS
     Route: 065
     Dates: start: 20131216, end: 20131218
  10. OMEPRAZOLE [Concomitant]
     Route: 065
  11. CALCEOS [Concomitant]
     Route: 065
     Dates: start: 20130812
  12. IBUPROFEN [Concomitant]
     Indication: PAIN
     Route: 065
     Dates: start: 201311

REACTIONS (1)
  - Neutropenic sepsis [Recovered/Resolved]
